FAERS Safety Report 5410931-1 (Version None)
Quarter: 2007Q3

REPORT INFORMATION
  Report Type: 
  Country: None (occurrence: None)
  Receive Date: 20070809
  Receipt Date: 20070809
  Transmission Date: 20080115
  Serious: No
  Sender: FDA-Public Use
  Company Number: None

PATIENT
  Age: 25 Year
  Sex: Female
  Weight: 108.8633 kg

DRUGS (3)
  1. BUSPIRONE HCL [Suspect]
     Dosage: 15 MG  BID  PO
     Route: 048
  2. CITALOPRAM [Concomitant]
  3. PROTONIX [Concomitant]

REACTIONS (2)
  - DRUG DISPENSING ERROR [None]
  - INCORRECT DOSE ADMINISTERED [None]
